FAERS Safety Report 21344147 (Version 1)
Quarter: 2022Q3

REPORT INFORMATION
  Report Type: Spontaneous
  Country: US (occurrence: US)
  Receive Date: 20220916
  Receipt Date: 20220916
  Transmission Date: 20221026
  Serious: No
  Sender: FDA-Public Use
  Company Number: US-SK LIFE SCIENCE, INC-SKPVG-2022-000525

PATIENT

DRUGS (11)
  1. XCOPRI [Suspect]
     Active Substance: CENOBAMATE
     Indication: Epilepsy
     Dosage: 25 MILLIGRAM, QD
     Route: 048
     Dates: start: 20220605, end: 20220605
  2. XCOPRI [Suspect]
     Active Substance: CENOBAMATE
     Dosage: 25 MILLIGRAM, QD
     Route: 048
     Dates: start: 20220607, end: 20220708
  3. TOPAMAX [Concomitant]
     Active Substance: TOPIRAMATE
     Indication: Epilepsy
     Dosage: 200 IN THE MORNING AND NIGHT
     Route: 065
  4. CARBAMAZEPINE [Concomitant]
     Active Substance: CARBAMAZEPINE
     Indication: Epilepsy
     Dosage: 200MG IN THE MORNING, LUNCH, AND NIGHT
     Route: 065
  5. ALENDRONATE [Concomitant]
     Active Substance: ALENDRONATE SODIUM
     Indication: Product used for unknown indication
     Dosage: 70 MILLIGRAM ONCE WEEKLY
     Route: 065
  6. TRAZODONE [Concomitant]
     Active Substance: TRAZODONE HYDROCHLORIDE
     Indication: Product used for unknown indication
     Dosage: UNK, PRN
     Route: 065
  7. CALCIUM [Concomitant]
     Active Substance: CALCIUM
     Indication: Product used for unknown indication
     Dosage: UNK
     Route: 065
  8. POTASSIUM                          /00031402/ [Concomitant]
     Indication: Product used for unknown indication
     Dosage: UNK
     Route: 065
  9. VITAMINS                           /00067501/ [Concomitant]
     Indication: Product used for unknown indication
     Dosage: UNK
     Route: 065
  10. BIOTIN [Concomitant]
     Active Substance: BIOTIN
     Indication: Product used for unknown indication
     Dosage: UNK
     Route: 065
  11. B12                                /00056201/ [Concomitant]
     Indication: Product used for unknown indication
     Dosage: UNK
     Route: 065

REACTIONS (2)
  - Product dose omission issue [Recovered/Resolved]
  - Therapy cessation [Not Recovered/Not Resolved]

NARRATIVE: CASE EVENT DATE: 20220606
